FAERS Safety Report 18347483 (Version 4)
Quarter: 2025Q3

REPORT INFORMATION
  Report Type: Spontaneous
  Country: EU (occurrence: EU)
  Receive Date: 20201006
  Receipt Date: 20250803
  Transmission Date: 20251021
  Serious: Yes (Hospitalization, Other)
  Sender: AUROBINDO
  Company Number: EU-BRUNO-20200452

PATIENT
  Age: 43 Year
  Sex: Female

DRUGS (16)
  1. TOPIRAMATE [Suspect]
     Active Substance: TOPIRAMATE
     Indication: Headache
     Route: 065
  2. LANSOPRAZOLE [Suspect]
     Active Substance: LANSOPRAZOLE
     Indication: Product used for unknown indication
     Route: 065
  3. ACETAMINOPHEN [Suspect]
     Active Substance: ACETAMINOPHEN
     Indication: Headache
     Route: 065
  4. FENTANYL [Suspect]
     Active Substance: FENTANYL
     Indication: Headache
     Route: 065
  5. INDOMETACIN MEGLUMINE [Suspect]
     Active Substance: INDOMETACIN MEGLUMINE
     Indication: Headache
     Dosage: 50 MILLIGRAM UP TO BID, DURING THE LAST HOSPITALIZATION
     Route: 065
  6. INDOMETACIN MEGLUMINE [Suspect]
     Active Substance: INDOMETACIN MEGLUMINE
     Dosage: 100 MILLIGRAM, ONCE A DAY
     Route: 065
  7. METAMIZOLE [Suspect]
     Active Substance: METAMIZOLE
     Indication: Headache
     Route: 065
  8. MORPHINE [Suspect]
     Active Substance: MORPHINE
     Indication: Headache
     Route: 065
  9. MORPHINE [Suspect]
     Active Substance: MORPHINE
     Route: 065
  10. NOVALGINA [Suspect]
     Active Substance: ACETAMINOPHEN\CAFFEINE
     Indication: Headache
     Route: 065
  11. ACETAMINOPHEN\OXYCODONE HYDROCHLORIDE [Suspect]
     Active Substance: ACETAMINOPHEN\OXYCODONE HYDROCHLORIDE
     Indication: Headache
     Route: 065
  12. ACETAMINOPHEN\OXYCODONE HYDROCHLORIDE [Suspect]
     Active Substance: ACETAMINOPHEN\OXYCODONE HYDROCHLORIDE
     Route: 065
  13. ACETAMINOPHEN\CODEINE PHOSPHATE [Suspect]
     Active Substance: ACETAMINOPHEN\CODEINE PHOSPHATE
     Indication: Headache
     Dosage: UP TO 20 TABLETS DAILY AT THE AGE OF 33-34 YEARS
     Route: 065
  14. ACETAMINOPHEN\CODEINE PHOSPHATE [Suspect]
     Active Substance: ACETAMINOPHEN\CODEINE PHOSPHATE
     Route: 065
  15. CLOMIPRAMINE [Suspect]
     Active Substance: CLOMIPRAMINE
     Indication: Headache
     Route: 065
  16. METHADONE [Suspect]
     Active Substance: METHADONE HYDROCHLORIDE
     Indication: Headache
     Route: 065

REACTIONS (3)
  - Gastroduodenal ulcer [Unknown]
  - Gastric haemorrhage [Unknown]
  - Drug abuse [Recovered/Resolved]
